FAERS Safety Report 11343730 (Version 1)
Quarter: 2015Q3

REPORT INFORMATION
  Report Type: Spontaneous
  Country: IN (occurrence: None)
  Receive Date: 20150804
  Receipt Date: 20150804
  Transmission Date: 20151125
  Serious: Yes (Death, Life-Threatening, Hospitalization, Other)
  Sender: FDA-Public Use
  Company Number: None

PATIENT
  Age: 70 Year
  Sex: Female

DRUGS (1)
  1. AZORAN (AZATHIOPRINE) [Suspect]
     Active Substance: AZATHIOPRINE
     Indication: ACUTE MYELOID LEUKAEMIA

REACTIONS (4)
  - Bone marrow failure [None]
  - Decreased appetite [None]
  - Pyrexia [None]
  - Alopecia [None]
